FAERS Safety Report 9560368 (Version 2)
Quarter: 2013Q4

REPORT INFORMATION
  Report Type: Spontaneous
  Country: US (occurrence: US)
  Receive Date: 20130927
  Receipt Date: 20131206
  Transmission Date: 20140711
  Serious: No
  Sender: FDA-Public Use
  Company Number: US-BIOGENIDEC-2013BI050636

PATIENT
  Age: 35 Year
  Sex: Female

DRUGS (12)
  1. TECFIDERA [Suspect]
     Indication: PRODUCT USED FOR UNKNOWN INDICATION
     Route: 048
     Dates: start: 20130520
  2. DEXILANT [Concomitant]
  3. LISINOPRIL [Concomitant]
  4. ALBUTEROL SULFATE [Concomitant]
  5. BACLOFEN [Concomitant]
  6. DILTIAZEM HCL [Concomitant]
  7. EMLA [Concomitant]
  8. FLONASE [Concomitant]
  9. PRILOSEC [Concomitant]
  10. VITAMIN D [Concomitant]
  11. WELLBUTRIN [Concomitant]
  12. LORATADINE [Concomitant]

REACTIONS (9)
  - Dysphonia [Unknown]
  - Constipation [Unknown]
  - Weight increased [Unknown]
  - Cognitive disorder [Unknown]
  - Nausea [Unknown]
  - Vomiting [Unknown]
  - Flushing [Unknown]
  - Pruritus [Unknown]
  - Abdominal pain [Unknown]
